FAERS Safety Report 21059005 (Version 8)
Quarter: 2023Q1

REPORT INFORMATION
  Report Type: Spontaneous
  Country: US (occurrence: US)
  Receive Date: 20220708
  Receipt Date: 20230206
  Transmission Date: 20230417
  Serious: Yes (Other)
  Sender: FDA-Public Use
  Company Number: US-PFIZER INC-PV202200017049

PATIENT
  Age: 65 Year
  Sex: Female

DRUGS (1)
  1. IBRANCE [Suspect]
     Active Substance: PALBOCICLIB
     Dosage: 100 MG, CYCLIC
     Dates: start: 20220614

REACTIONS (14)
  - Tooth fracture [Unknown]
  - Root canal infection [Unknown]
  - Loss of consciousness [Unknown]
  - Stomatitis [Recovered/Resolved]
  - Fatigue [Recovered/Resolved]
  - Blood test abnormal [Unknown]
  - Asthenia [Unknown]
  - Fall [Unknown]
  - Hypertension [Unknown]
  - Renal disorder [Unknown]
  - Mouth ulceration [Unknown]
  - Fatigue [Unknown]
  - Laboratory test abnormal [Unknown]
  - Alopecia [Unknown]

NARRATIVE: CASE EVENT DATE: 20220101
